FAERS Safety Report 9374098 (Version 2)
Quarter: 2013Q4

REPORT INFORMATION
  Report Type: Report from Study
  Country: PL (occurrence: PL)
  Receive Date: 20130628
  Receipt Date: 20131031
  Transmission Date: 20140711
  Serious: Yes (Hospitalization)
  Sender: FDA-Public Use
  Company Number: PL-BIOGENIDEC-2013BI030758

PATIENT
  Age: 33 Year
  Sex: Male
  Weight: 66 kg

DRUGS (8)
  1. BG00012 [Suspect]
     Indication: MULTIPLE SCLEROSIS
     Dates: start: 20101126
  2. BACLOFEN [Concomitant]
     Indication: MUSCLE SPASTICITY
     Route: 048
     Dates: start: 20100809
  3. MILGAMMA [Concomitant]
     Indication: PARAESTHESIA
     Route: 048
     Dates: start: 20100809
  4. BETASERC [Concomitant]
     Indication: VERTIGO
     Route: 048
     Dates: start: 20120706
  5. DICLOFENAC [Concomitant]
     Indication: ARTHRALGIA
     Route: 048
     Dates: start: 20090608
  6. MYOLASTAN [Concomitant]
     Indication: ARTHRALGIA
     Route: 048
     Dates: start: 20090608
  7. GASEC [Concomitant]
     Indication: PROPHYLAXIS
     Route: 048
     Dates: start: 20090608
  8. SIRALUD [Concomitant]
     Indication: BACK PAIN
     Route: 048
     Dates: start: 20090803

REACTIONS (1)
  - Multiple sclerosis relapse [Recovered/Resolved]
